FAERS Safety Report 9322943 (Version 1)
Quarter: 2013Q2

REPORT INFORMATION
  Report Type: Spontaneous
  Country: US (occurrence: US)
  Receive Date: 20130601
  Receipt Date: 20130601
  Transmission Date: 20140414
  Serious: Yes (Hospitalization)
  Sender: FDA-Public Use
  Company Number: US-ROCHE-1231344

PATIENT
  Age: 57 Year
  Sex: Male

DRUGS (4)
  1. RITUXAN [Suspect]
     Indication: ARTHRITIS
     Route: 065
  2. HYDRALAZINE [Suspect]
     Indication: HYPERTENSION
     Route: 065
  3. CYCLOPHOSPHAMIDE [Concomitant]
     Indication: SCLERODERMA
  4. PLAQUENIL [Concomitant]
     Indication: SCLERODERMA

REACTIONS (1)
  - White blood cell count decreased [Not Recovered/Not Resolved]
